FAERS Safety Report 23761827 (Version 1)
Quarter: 2024Q2

REPORT INFORMATION
  Report Type: Spontaneous
  Country: DK (occurrence: DK)
  Receive Date: 20240419
  Receipt Date: 20240419
  Transmission Date: 20240716
  Serious: Yes (Hospitalization, Other)
  Sender: FDA-Public Use
  Company Number: DK-LEADINGPHARMA-DK-2024LEALIT00092

PATIENT
  Age: 82 Year
  Sex: Female
  Weight: 70 kg

DRUGS (1)
  1. LIDOCAINE [Suspect]
     Active Substance: LIDOCAINE
     Indication: Anaesthesia
     Dosage: 8 TIMES THE TOXIC DOSE
     Route: 065

REACTIONS (4)
  - Atrioventricular block first degree [Recovered/Resolved]
  - Altered state of consciousness [Recovered/Resolved]
  - Local anaesthetic systemic toxicity [Recovered/Resolved]
  - Overdose [Unknown]
